FAERS Safety Report 26092027 (Version 1)
Quarter: 2025Q4

REPORT INFORMATION
  Report Type: Spontaneous
  Country: JP (occurrence: JP)
  Receive Date: 20251126
  Receipt Date: 20251126
  Transmission Date: 20260118
  Serious: Yes (Hospitalization)
  Sender: MERCK SHARP & DOHME LLC
  Company Number: JP-009507513-2351988

PATIENT
  Age: 7 Decade
  Sex: Male

DRUGS (2)
  1. KEYTRUDA [Suspect]
     Active Substance: PEMBROLIZUMAB
     Indication: Bladder cancer
     Route: 065
  2. ENFORTUMAB VEDOTIN [Suspect]
     Active Substance: ENFORTUMAB VEDOTIN
     Indication: Bladder cancer

REACTIONS (7)
  - Movement disorder [Unknown]
  - Decreased appetite [Unknown]
  - Cortisol decreased [Unknown]
  - Secondary adrenocortical insufficiency [Unknown]
  - Hyponatraemia [Unknown]
  - Erythema [Unknown]
  - Blood corticotrophin decreased [Unknown]
